FAERS Safety Report 9517436 (Version 2)
Quarter: 2013Q3

REPORT INFORMATION
  Report Type: Spontaneous
  Country: US (occurrence: US)
  Receive Date: 20130911
  Receipt Date: 20130917
  Transmission Date: 20140515
  Serious: Yes (Hospitalization, Other)
  Sender: FDA-Public Use
  Company Number: US-GILEAD-2013-0083162

PATIENT
  Age: 65 Year
  Sex: Female

DRUGS (2)
  1. LETAIRIS [Suspect]
     Indication: PULMONARY HYPERTENSION
     Dosage: 5 MG, QD
     Dates: start: 20130718
  2. LETAIRIS [Suspect]
     Indication: SLEEP APNOEA SYNDROME

REACTIONS (2)
  - Gastrointestinal haemorrhage [Unknown]
  - Coronary arterial stent insertion [Unknown]
